FAERS Safety Report 9203947 (Version 2)
Quarter: 2013Q2

REPORT INFORMATION
  Report Type: Spontaneous
  Country: US (occurrence: None)
  Receive Date: 20120709
  Receipt Date: 20121107
  Transmission Date: 20140414
  Serious: No
  Sender: FDA-Public Use
  Company Number: 2012HGS-003448

PATIENT
  Age: 55 Year
  Sex: Female
  Weight: 56.7 kg

DRUGS (11)
  1. BENLYSTA [Suspect]
     Indication: SYSTEMIC LUPUS ERYTHEMATOSUS
     Route: 041
     Dates: start: 20120319
  2. PLAQUENIL (HYDROXYCHLOROQUINE PHOSPHATE) [Concomitant]
  3. FELDENE (PIROXICAM)(PIROXICAM) [Concomitant]
  4. MULTIVITAMIN (VIGRAN) (ERCLCIFEROL, ASCORBID ACID, PYROXINE HYDROCHLORIDE, THIAMINE HYDROCHLORIDE, RETINOL, RIBOFLAVIN, NICOTINAMIDE, CALCIUM PANTOTHENATE) [Concomitant]
  5. ASPIRIN (ACETYLSALICYLIC ACID) (ACETYLSALICYLIC ACID) [Concomitant]
  6. PROTONIX (PANTOPRAZOLE SODIUM) [Concomitant]
  7. PROZAC (FLUOXETINE HYDROCHLORIDE) (FLUOXETINE HYDROCHLORIDE) [Concomitant]
  8. PRAVASTATIN (PRAVASTATIN) (PRAVASTATIN) (PRAVASTATIN) [Concomitant]
  9. LORTAB 10/325 (VICODIN) (PARACETAMOL, HYDROCODONE BITARTRATE) [Concomitant]
  10. VITAMIN D3 (COLECALCIFEROL) (COLECALCIFEROL) [Concomitant]
  11. ZOLPIDEM (ZOLPIDEM) (ZOLPIDEM) [Concomitant]

REACTIONS (1)
  - Pruritus [None]
